FAERS Safety Report 6877578-1 (Version None)
Quarter: 2010Q3

REPORT INFORMATION
  Report Type: 
  Country: None (occurrence: None)
  Receive Date: 20100727
  Receipt Date: 20100312
  Transmission Date: 20110219
  Serious: No
  Sender: FDA-Public Use
  Company Number: US-ABBOTT-10P-163-0632416-00

PATIENT
  Sex: Female
  Weight: 65.376 kg

DRUGS (3)
  1. SYNTHROID [Suspect]
     Indication: HYPOTHYROIDISM
     Dates: start: 20060101, end: 20080101
  2. SYNTHROID [Suspect]
     Dosage: CUT TABLETS IN HALF FOR 75MCG DOSE
     Dates: start: 20080101, end: 20100101
  3. SYNTHROID [Suspect]
     Dates: start: 20100101

REACTIONS (5)
  - ARTHRALGIA [None]
  - PAIN IN EXTREMITY [None]
  - PARAESTHESIA [None]
  - PRURITUS [None]
  - WRONG TECHNIQUE IN DRUG USAGE PROCESS [None]
